FAERS Safety Report 8454631-2 (Version None)
Quarter: 2012Q2

REPORT INFORMATION
  Report Type: 
  Country: None (occurrence: None)
  Receive Date: 20120621
  Receipt Date: 20120613
  Transmission Date: 20120825
  Serious: No
  Sender: FDA-Public Use
  Company Number: US-BIOGENIDEC-2012BI021040

PATIENT
  Age: 61 Year
  Sex: Female

DRUGS (2)
  1. AVONEX [Suspect]
     Indication: MULTIPLE SCLEROSIS
     Route: 030
  2. AVONEX [Suspect]
     Route: 030
     Dates: start: 20080203

REACTIONS (8)
  - NEUROPATHY PERIPHERAL [None]
  - JOINT STIFFNESS [None]
  - HYPOAESTHESIA ORAL [None]
  - HYPOAESTHESIA [None]
  - PAIN IN EXTREMITY [None]
  - GAIT DISTURBANCE [None]
  - FEELING ABNORMAL [None]
  - DIZZINESS [None]
